FAERS Safety Report 7082758-9 (Version None)
Quarter: 2010Q4

REPORT INFORMATION
  Report Type: 
  Country: None (occurrence: None)
  Receive Date: 20101026
  Receipt Date: 20101008
  Transmission Date: 20110411
  Serious: Yes (Other)
  Sender: FDA-Public Use
  Company Number: 20100485

PATIENT
  Age: 86 Year
  Sex: Female

DRUGS (2)
  1. SODIUM BICARBONATE [Suspect]
     Indication: MEDICATION ERROR
     Dosage: 15 ML SUBCUTANEOUS
     Route: 058
     Dates: start: 20101005, end: 20101005
  2. LIDOCAINE HYDROCHLORIDE [Concomitant]

REACTIONS (4)
  - INJECTION SITE IRRITATION [None]
  - INJECTION SITE PAIN [None]
  - MEDICATION ERROR [None]
  - WRONG DRUG ADMINISTERED [None]
